FAERS Safety Report 5657290-7 (Version None)
Quarter: 2008Q1

REPORT INFORMATION
  Report Type: 
  Country: None (occurrence: None)
  Receive Date: 20080310
  Receipt Date: 20080228
  Transmission Date: 20080703
  Serious: Yes (Death)
  Sender: FDA-Public Use
  Company Number: US-PFIZER INC-2008018574

PATIENT
  Sex: Female

DRUGS (9)
  1. CELECOXIB [Suspect]
     Dosage: DAILY DOSE:200MG
     Route: 048
  2. METHOTREXATE [Suspect]
     Dosage: DAILY DOSE:12.5MG
     Route: 048
  3. ETANERCEPT [Suspect]
     Indication: RHEUMATOID ARTHRITIS
     Dosage: DAILY DOSE:50MG
     Route: 058
     Dates: start: 20021204, end: 20050908
  4. GABAPENTIN [Concomitant]
  5. LEVOTHYROXINE SODIUM [Concomitant]
     Dosage: DAILY DOSE:.125MG
  6. PROPRANOLOL [Concomitant]
     Dosage: DAILY DOSE:120MG
  7. ESTRADIOL [Concomitant]
     Dosage: DAILY DOSE:1MG
     Dates: start: 19630901, end: 20050901
  8. OXYBUTYNIN CHLORIDE [Concomitant]
     Dosage: DAILY DOSE:2.5MG
  9. CARBIDOPA [Concomitant]

REACTIONS (1)
  - OVARIAN CANCER [None]
